FAERS Safety Report 24990395 (Version 1)
Quarter: 2025Q1

REPORT INFORMATION
  Report Type: Spontaneous
  Country: DE (occurrence: DE)
  Receive Date: 20250220
  Receipt Date: 20250220
  Transmission Date: 20250408
  Serious: Yes (Hospitalization, Other)
  Sender: PFIZER
  Company Number: DE-EMB-M202403517-1

PATIENT
  Sex: Female
  Weight: 98 kg

DRUGS (4)
  1. SULFASALAZINE [Suspect]
     Active Substance: SULFASALAZINE
     Indication: Rheumatoid arthritis
     Route: 048
     Dates: start: 202403, end: 202404
  2. ORENCIA [Suspect]
     Active Substance: ABATACEPT
     Indication: Rheumatoid arthritis
     Dosage: STOPPED IN GW 1
     Route: 042
     Dates: start: 202403, end: 202403
  3. FOLSAEURE STADA [Concomitant]
     Indication: Prophylaxis of neural tube defect
     Dosage: PROBABLY LONGER APPLIED
     Route: 048
     Dates: start: 202403, end: 202404
  4. REMICADE [Concomitant]
     Active Substance: INFLIXIMAB
     Indication: Rheumatoid arthritis
     Route: 042

REACTIONS (1)
  - Abortion missed [Recovered/Resolved]
